FAERS Safety Report 24414550 (Version 1)
Quarter: 2024Q4

REPORT INFORMATION
  Report Type: Spontaneous
  Country: FR (occurrence: FR)
  Receive Date: 20241009
  Receipt Date: 20241009
  Transmission Date: 20250115
  Serious: Yes (Hospitalization, Other)
  Sender: AUROBINDO
  Company Number: FR-AFSSAPS-PP2024001056

PATIENT
  Age: 67 Year
  Sex: Female
  Weight: 70 kg

DRUGS (2)
  1. LETROZOLE [Suspect]
     Active Substance: LETROZOLE
     Indication: Invasive ductal breast carcinoma
     Dosage: 2.5 MILLIGRAM, ONCE A DAY
     Route: 048
     Dates: start: 20240210
  2. KISQALI [Suspect]
     Active Substance: RIBOCICLIB
     Indication: Invasive ductal breast carcinoma
     Dosage: 600 MILLIGRAM, ONCE A DAY
     Route: 048
     Dates: start: 20240210, end: 20240503

REACTIONS (1)
  - Hepatic cytolysis [Not Recovered/Not Resolved]

NARRATIVE: CASE EVENT DATE: 20240502
